FAERS Safety Report 13116404 (Version 1)
Quarter: 2017Q1

REPORT INFORMATION
  Report Type: Spontaneous
  Country: US (occurrence: US)
  Receive Date: 20170116
  Receipt Date: 20170116
  Transmission Date: 20170428
  Serious: No
  Sender: FDA-Public Use
  Company Number: US-LEO PHARMA-245426

PATIENT
  Age: 59 Year
  Sex: Female

DRUGS (1)
  1. PICATO [Suspect]
     Active Substance: INGENOL MEBUTATE
     Indication: ACTINIC KERATOSIS
     Route: 061
     Dates: start: 20170104

REACTIONS (8)
  - Application site erythema [Not Recovered/Not Resolved]
  - Muscle twitching [Not Recovered/Not Resolved]
  - Application site pain [Unknown]
  - Application site discharge [Not Recovered/Not Resolved]
  - Application site pain [Recovered/Resolved]
  - Drug administered at inappropriate site [Unknown]
  - Application site swelling [Not Recovered/Not Resolved]
  - Application site vesicles [Not Recovered/Not Resolved]

NARRATIVE: CASE EVENT DATE: 20170104
